FAERS Safety Report 24828014 (Version 2)
Quarter: 2025Q1

REPORT INFORMATION
  Report Type: Spontaneous
  Country: US (occurrence: US)
  Receive Date: 20250109
  Receipt Date: 20250205
  Transmission Date: 20250409
  Serious: Yes (Other)
  Sender: BIOMARIN
  Company Number: US-BIOMARINAP-US-2025-162945

PATIENT

DRUGS (1)
  1. PALYNZIQ [Suspect]
     Active Substance: PEGVALIASE-PQPZ
     Indication: Phenylketonuria
     Route: 058
     Dates: start: 20241116

REACTIONS (4)
  - Hypertension [Recovering/Resolving]
  - Renal failure [Recovering/Resolving]
  - Tooth infection [Recovering/Resolving]
  - Toothache [Recovering/Resolving]

NARRATIVE: CASE EVENT DATE: 20250101
